FAERS Safety Report 20110364 (Version 1)
Quarter: 2021Q4

REPORT INFORMATION
  Report Type: Spontaneous
  Country: US (occurrence: US)
  Receive Date: 20211124
  Receipt Date: 20211124
  Transmission Date: 20220303
  Serious: No
  Sender: FDA-Public Use
  Company Number: US-NOVOPROD-790331

PATIENT
  Age: 70 Year
  Sex: Female

DRUGS (3)
  1. NOVOLOG [Suspect]
     Active Substance: INSULIN ASPART
     Indication: Product used for unknown indication
     Dosage: 15 IU, QD
     Route: 058
     Dates: start: 20210119
  2. NOVOLOG [Suspect]
     Active Substance: INSULIN ASPART
     Dosage: 21 IU, QD (DOSE INCREASED)
     Route: 058
     Dates: start: 20210211
  3. INSULIN GLARGINE [Suspect]
     Active Substance: INSULIN GLARGINE
     Indication: Product used for unknown indication
     Dosage: 28 IU
     Route: 058
     Dates: start: 20210119

REACTIONS (3)
  - Peripheral coldness [Not Recovered/Not Resolved]
  - Skin discolouration [Not Recovered/Not Resolved]
  - Peripheral swelling [Not Recovered/Not Resolved]

NARRATIVE: CASE EVENT DATE: 20210214
